FAERS Safety Report 22319232 (Version 1)
Quarter: 2023Q2

REPORT INFORMATION
  Report Type: Spontaneous
  Country: HR (occurrence: HR)
  Receive Date: 20230515
  Receipt Date: 20230515
  Transmission Date: 20230722
  Serious: Yes (Other)
  Sender: FDA-Public Use
  Company Number: None

PATIENT
  Sex: Male

DRUGS (3)
  1. IBUPROFEN [Suspect]
     Active Substance: IBUPROFEN
     Indication: Product used for unknown indication
     Dosage: 2 BLISTERS
     Route: 065
     Dates: start: 20230307, end: 20230307
  2. IBUPROFEN [Suspect]
     Active Substance: IBUPROFEN
     Indication: Product used for unknown indication
     Dosage: 3 BLISTERS
     Route: 065
     Dates: start: 20230307, end: 20230307
  3. OXAZEPAM [Suspect]
     Active Substance: OXAZEPAM
     Indication: Product used for unknown indication
     Dosage: 3 BLISTERS (30TBL)
     Route: 065
     Dates: start: 20230307, end: 20230307

REACTIONS (5)
  - Suicide attempt [Unknown]
  - Loss of consciousness [Recovering/Resolving]
  - Intentional overdose [Unknown]
  - Bradykinesia [Unknown]
  - Slow speech [Unknown]

NARRATIVE: CASE EVENT DATE: 20230307
